FAERS Safety Report 4503512-5 (Version None)
Quarter: 2004Q4

REPORT INFORMATION
  Report Type: 
  Country: None (occurrence: None)
  Receive Date: 20041112
  Receipt Date: 20041102
  Transmission Date: 20050328
  Serious: Yes (Hospitalization)
  Sender: FDA-Public Use
  Company Number: 2004242709GB

PATIENT
  Age: 43 Year
  Sex: Female
  Weight: 84 kg

DRUGS (4)
  1. FARMORUBICIN (EPIRUBICIN HYDROCHLORIDE) SOLUTION, STERILE [Suspect]
     Indication: BREAST CANCER
     Dosage: 170 MG,
     Dates: end: 20040608
  2. CYCLOPHOSPHAMIDE [Suspect]
     Indication: BREAST CANCER
     Dosage: 1100 MG,
     Dates: end: 20040608
  3. GEMZAR [Suspect]
     Indication: BREAST CANCER
     Dosage: 2350 MG,
  4. PACLITAXEL [Suspect]
     Indication: BREAST CANCER
     Dosage: 330 MG,

REACTIONS (3)
  - ARTHROPOD BITE [None]
  - PHLEBITIS INFECTIVE [None]
  - URINARY TRACT INFECTION [None]
